FAERS Safety Report 14900294 (Version 1)
Quarter: 2018Q2

REPORT INFORMATION
  Report Type: Report from Study
  Country: ES (occurrence: ES)
  Receive Date: 20180516
  Receipt Date: 20180516
  Transmission Date: 20180711
  Serious: Yes (Death, Hospitalization, Other)
  Sender: FDA-Public Use
  Company Number: ES-ASPEN-GLO2018ES004651

PATIENT
  Age: 37 Year
  Sex: Male

DRUGS (6)
  1. BUSULFANO ASPEN [Suspect]
     Active Substance: BUSULFAN
     Indication: ACUTE MYELOID LEUKAEMIA
     Dosage: || DOSIS UNIDAD FRECUENCIA: 240 MG-MILIGRAMOS || DOSIS POR TOMA: 240 MG-MILIGRAMOS || N? TOMAS POR U
     Route: 042
     Dates: start: 20130822, end: 20130824
  2. FLUDARABINA [Interacting]
     Active Substance: FLUDARABINE PHOSPHATE
     Indication: ACUTE MYELOID LEUKAEMIA
     Dosage: || DOSIS UNIDAD FRECUENCIA: 240 MG-MILIGRAMOS || DOSIS POR TOMA: 240 MG-MILIGRAMOS || N? TOMAS POR U
     Route: 042
     Dates: start: 20130821, end: 20130824
  3. CICLOSPORINA [Interacting]
     Active Substance: CYCLOSPORINE
     Indication: PRODUCT USED FOR UNKNOWN INDICATION
     Route: 065
  4. MESNA. [Concomitant]
     Active Substance: MESNA
     Indication: ACUTE MYELOID LEUKAEMIA
     Dosage: || DOSIS UNIDAD FRECUENCIA: 8 G-GRAMOS || DOSIS POR TOMA: 8 G-GRAMOS || N? TOMAS POR UNIDAD DE FRECU
     Route: 042
     Dates: start: 20130825, end: 20130826
  5. CICLOFOSFAMIDA [Interacting]
     Active Substance: CYCLOPHOSPHAMIDE
     Indication: ACUTE MYELOID LEUKAEMIA
     Dosage: || DOSIS UNIDAD FRECUENCIA: 2 G-GRAMOS || DOSIS POR TOMA: 2 G-GRAMOS || N? TOMAS POR UNIDAD DE FRECU
     Route: 042
     Dates: start: 20130824, end: 20130825
  6. METILPREDNISOLONA [Interacting]
     Active Substance: METHYLPREDNISOLONE
     Indication: ACUTE MYELOID LEUKAEMIA
     Dosage: || DOSIS UNIDAD FRECUENCIA: 80 MG-MILIGRAMOS || DOSIS POR TOMA: 80 MG-MILIGRAMOS || N? TOMAS POR UNI
     Route: 042
     Dates: start: 20130827, end: 20130827

REACTIONS (1)
  - Cytomegalovirus hepatitis [Fatal]

NARRATIVE: CASE EVENT DATE: 20130909
